FAERS Safety Report 7880339-8 (Version None)
Quarter: 2011Q4

REPORT INFORMATION
  Report Type: 
  Country: None (occurrence: None)
  Receive Date: 20111101
  Receipt Date: 20111025
  Transmission Date: 20120403
  Serious: Yes (Other)
  Sender: FDA-Public Use
  Company Number: US-ASTRAZENECA-2011SE64822

PATIENT
  Age: 49 Year
  Sex: Male

DRUGS (1)
  1. PRILOSEC [Suspect]
     Route: 048

REACTIONS (1)
  - BARRETT'S OESOPHAGUS [None]
